FAERS Safety Report 21875054 (Version 9)
Quarter: 2023Q2

REPORT INFORMATION
  Report Type: Report from Study
  Country: DE (occurrence: DE)
  Receive Date: 20230117
  Receipt Date: 20230614
  Transmission Date: 20230722
  Serious: Yes (Hospitalization)
  Sender: FDA-Public Use
  Company Number: DE-AMGEN-DEUCT2023008243

PATIENT
  Age: 63 Year
  Sex: Male
  Weight: 82 kg

DRUGS (13)
  1. SOTORASIB [Suspect]
     Active Substance: SOTORASIB
     Indication: Non-small cell lung cancer
     Dosage: UNK UNK, QD
     Route: 065
     Dates: start: 20221206, end: 20230109
  2. RMC-4630 [Suspect]
     Active Substance: RMC-4630
     Indication: Non-small cell lung cancer
     Dosage: UNK, Q2WK
     Route: 065
     Dates: start: 20221206, end: 20230109
  3. FOLIC ACID [Concomitant]
     Active Substance: FOLIC ACID
     Indication: Prophylaxis
     Dosage: UNK
     Dates: start: 20221117
  4. NALOXEGOL OXALATE [Concomitant]
     Active Substance: NALOXEGOL OXALATE
     Indication: Constipation
     Dosage: UNK
     Dates: start: 20221118
  5. LYRICA [Concomitant]
     Active Substance: PREGABALIN
     Indication: Pain management
     Dosage: UNK
     Dates: start: 20221121
  6. Delix [Concomitant]
     Indication: Hypertension
     Dosage: UNK
     Dates: start: 2020
  7. ZOPICLONE [Concomitant]
     Active Substance: ZOPICLONE
     Indication: Somniphobia
     Dosage: UNK
     Dates: start: 20221117
  8. FRESUBIN [Concomitant]
     Active Substance: AMINO ACIDS\DEXTROSE\ELECTROLYTES NOS\SOYBEAN OIL\VITAMINS
     Dosage: UNK
  9. FENTANYL [Concomitant]
     Active Substance: FENTANYL
     Indication: Pain management
     Dosage: UNK
     Dates: start: 20221117
  10. BISOPROLOL [Concomitant]
     Active Substance: BISOPROLOL
     Indication: Hypertension
     Dosage: UNK
     Dates: start: 2020
  11. LORAZEPAM [Concomitant]
     Active Substance: LORAZEPAM
     Indication: Somniphobia
     Dosage: UNK
     Dates: start: 20221130
  12. AMOXICILLIN [Concomitant]
     Active Substance: AMOXICILLIN
     Indication: Bronchitis
     Dosage: UNK
     Dates: start: 20221208, end: 20221212
  13. ALUMINUM HYDROXIDE\MAGNESIUM HYDROXIDE [Concomitant]
     Active Substance: ALUMINUM HYDROXIDE\MAGNESIUM HYDROXIDE
     Indication: Abdominal pain
     Dosage: UNK
     Dates: start: 20221230, end: 20230108

REACTIONS (1)
  - Cholestasis [Recovered/Resolved with Sequelae]

NARRATIVE: CASE EVENT DATE: 20230108
